FAERS Safety Report 8981521 (Version 2)
Quarter: 2012Q4

REPORT INFORMATION
  Report Type: 
  Country: US (occurrence: US)
  Receive Date: 20121221
  Receipt Date: 20121228
  Transmission Date: 20130627
  Serious: Yes (Hospitalization)
  Sender: FDA-Public Use
  Company Number: US-JNJFOC-20121206109

PATIENT
  Age: 41 Year
  Sex: Female
  Weight: 127 kg

DRUGS (9)
  1. TYLENOL [Suspect]
     Route: 048
  2. TYLENOL [Suspect]
     Indication: PRODUCT USED FOR UNKNOWN INDICATION
     Route: 048
  3. REBIF [Suspect]
     Indication: MULTIPLE SCLEROSIS
     Route: 058
     Dates: start: 20121109, end: 20121112
  4. REBIF [Suspect]
     Indication: MULTIPLE SCLEROSIS
     Route: 058
     Dates: start: 20121026, end: 20121108
  5. FIORICET [Suspect]
     Indication: HEADACHE
     Route: 048
     Dates: end: 20121112
  6. ELAVIL [Suspect]
     Indication: MIGRAINE
     Route: 048
  7. METOPROLOL [Concomitant]
     Indication: PRODUCT USED FOR UNKNOWN INDICATION
     Route: 065
  8. GABAPENTIN [Concomitant]
     Indication: PARAESTHESIA
     Route: 048
  9. AN UNKNOWN MEDICATION [Concomitant]
     Indication: PRODUCT USED FOR UNKNOWN INDICATION
     Route: 065

REACTIONS (9)
  - Gastric ulcer [Not Recovered/Not Resolved]
  - Mallory-Weiss syndrome [Not Recovered/Not Resolved]
  - Hepatomegaly [Not Recovered/Not Resolved]
  - Liver function test abnormal [Not Recovered/Not Resolved]
  - Appendicitis [Not Recovered/Not Resolved]
  - Nausea [Unknown]
  - Vomiting [Unknown]
  - Respiratory distress [Unknown]
  - Incision site infection [Unknown]
